FAERS Safety Report 7656362-5 (Version None)
Quarter: 2011Q3

REPORT INFORMATION
  Report Type: 
  Country: None (occurrence: None)
  Receive Date: 20110804
  Receipt Date: 20110719
  Transmission Date: 20111222
  Serious: Yes (Hospitalization)
  Sender: FDA-Public Use
  Company Number: US-GLAXOSMITHKLINE-A0886513A

PATIENT
  Age: 58 Year
  Sex: Male
  Weight: 97.7 kg

DRUGS (5)
  1. FLOMAX [Concomitant]
  2. AVANDAMET [Suspect]
     Indication: DIABETES MELLITUS
     Route: 048
     Dates: start: 20050720, end: 20060305
  3. AVODART [Concomitant]
  4. AMARYL [Concomitant]
  5. AVANDIA [Suspect]
     Indication: DIABETES MELLITUS
     Route: 048
     Dates: start: 20060305, end: 20070801

REACTIONS (5)
  - CORONARY ARTERY DISEASE [None]
  - SUPRAVENTRICULAR TACHYCARDIA [None]
  - MYOCARDIAL ISCHAEMIA [None]
  - PERIPHERAL VASCULAR DISORDER [None]
  - CARDIOVASCULAR DISORDER [None]
